FAERS Safety Report 10619113 (Version 1)
Quarter: 2014Q4

REPORT INFORMATION
  Report Type: Spontaneous
  Country: US (occurrence: None)
  Receive Date: 20141126
  Receipt Date: 20141126
  Transmission Date: 20150529
  Serious: Yes (Hospitalization)
  Sender: FDA-Public Use
  Company Number: US-H14001-14-01684

PATIENT
  Age: 74 Year
  Sex: Female

DRUGS (3)
  1. HEPARIN [Suspect]
     Active Substance: HEPARIN SODIUM
     Indication: ANTICOAGULANT THERAPY
     Route: 041
  2. STEROID [Suspect]
     Active Substance: UNSPECIFIED INGREDIENT
     Indication: BACK PAIN
     Route: 008
  3. CARDIZEM [Suspect]
     Active Substance: DILTIAZEM HYDROCHLORIDE
     Indication: HEART RATE INCREASED

REACTIONS (8)
  - Decreased vibratory sense [None]
  - Deep vein thrombosis [None]
  - Constipation [None]
  - Urinary retention [None]
  - Spinal epidural haematoma [None]
  - Paralysis flaccid [None]
  - Atrial fibrillation [None]
  - Pulmonary embolism [None]
